FAERS Safety Report 5073285-9 (Version None)
Quarter: 2006Q3

REPORT INFORMATION
  Report Type: 
  Country: None (occurrence: None)
  Receive Date: 20060802
  Receipt Date: 20060724
  Transmission Date: 20061208
  Serious: Yes (Hospitalization, Other)
  Sender: FDA-Public Use
  Company Number: 2006084865

PATIENT
  Sex: Female

DRUGS (25)
  1. NEURONTIN [Suspect]
     Indication: PROCEDURAL PAIN
     Dosage: SEE IMAGE
     Route: 048
     Dates: end: 20060621
  2. NEURONTIN [Suspect]
     Indication: TRIGEMINAL NEURALGIA
     Dosage: SEE IMAGE
     Route: 048
     Dates: end: 20060621
  3. NEURONTIN [Suspect]
     Indication: PROCEDURAL PAIN
     Dosage: SEE IMAGE
     Route: 048
     Dates: start: 20060621
  4. NEURONTIN [Suspect]
     Indication: TRIGEMINAL NEURALGIA
     Dosage: SEE IMAGE
     Route: 048
     Dates: start: 20060621
  5. DILANTIN [Suspect]
     Indication: CONVULSION
     Dosage: 300 MG (300 MG, 1 IN 1 D)
     Dates: start: 20060623
  6. GABAPENTIN [Suspect]
     Indication: TRIGEMINAL NEURALGIA
     Dosage: 2400 MG (600 MG, 4 IN 1 D)
  7. ALL OTHER THERAPEUTIC PRODUCTS (ALL OTHER THERAPEUTIC PRODUCTS) [Suspect]
     Indication: DRUG USE FOR UNKNOWN INDICATION
  8. PROZAC [Suspect]
     Indication: DRUG USE FOR UNKNOWN INDICATION
     Dosage: 50 MG (50 MG, 1 IN 1 D)
  9. SYNTHROID [Concomitant]
  10. LASIX [Concomitant]
  11. ALLOPURINOL [Concomitant]
  12. NITRO PATCH (GLYCERYL TRINITRATE) [Concomitant]
  13. TENORMIN [Concomitant]
  14. MONTELUKAST (MONTELUKAST) [Concomitant]
  15. IMDUR [Concomitant]
  16. NASCOBAL (CYANOCOBALAMIN) [Concomitant]
  17. CRESTOR [Concomitant]
  18. ZETIA [Concomitant]
  19. VITAMIN D [Concomitant]
  20. CLARITIN [Concomitant]
  21. NITROGLYCERIN [Concomitant]
  22. ACIPHEX [Concomitant]
  23. PREVACID [Concomitant]
  24. NITRO-DUR [Concomitant]
  25. NEURONTIN [Suspect]

REACTIONS (11)
  - CONDITION AGGRAVATED [None]
  - CONVULSION [None]
  - DRUG PRESCRIBING ERROR [None]
  - DYSGEUSIA [None]
  - DYSPEPSIA [None]
  - GASTROOESOPHAGEAL REFLUX DISEASE [None]
  - MALAISE [None]
  - PAIN IN JAW [None]
  - VITAMIN D DEFICIENCY [None]
  - WHITE BLOOD CELL COUNT INCREASED [None]
  - WRONG TECHNIQUE IN DRUG USAGE PROCESS [None]
